FAERS Safety Report 9307576 (Version 1)
Quarter: 2013Q2

REPORT INFORMATION
  Report Type: Spontaneous
  Country: US (occurrence: US)
  Receive Date: 20130524
  Receipt Date: 20130524
  Transmission Date: 20140414
  Serious: No
  Sender: FDA-Public Use
  Company Number: US-PFIZER INC-2013154469

PATIENT
  Age: 69 Year
  Sex: Male
  Weight: 77.1 kg

DRUGS (3)
  1. VIAGRA [Suspect]
     Indication: ERECTILE DYSFUNCTION
     Dosage: 50 MG, AS NEEDED
     Dates: start: 2011
  2. LEXAPRO [Interacting]
     Indication: DEPRESSION
     Dosage: 20 MG DAILY
  3. WELLBUTRIN [Interacting]
     Indication: DEPRESSION
     Dosage: 150 MG, 2X/DAY

REACTIONS (2)
  - Drug interaction [Unknown]
  - Drug ineffective [Unknown]
